FAERS Safety Report 22856113 (Version 4)
Quarter: 2024Q4

REPORT INFORMATION
  Report Type: Report from Study
  Country: US (occurrence: US)
  Receive Date: 20230823
  Receipt Date: 20241031
  Transmission Date: 20250115
  Serious: No
  Sender: NOVARTIS
  Company Number: US-002147023-NVSC2023US181214

PATIENT
  Age: 26 Year
  Sex: Female
  Weight: 85 kg

DRUGS (24)
  1. MYFORTIC [Suspect]
     Active Substance: MYCOPHENOLATE SODIUM
     Indication: Renal transplant
     Dosage: 180 MG, BID (TITRATED UP TO 360 MG TWICE A DAY AFTER 1 WEEK)
     Route: 048
     Dates: start: 20230629, end: 20230815
  2. TACROLIMUS [Concomitant]
     Active Substance: TACROLIMUS
     Indication: Renal transplant
     Dosage: UNK, BID (4 MG IN AM AND 5 MG IN PM)
     Route: 065
     Dates: start: 202104
  3. TACROLIMUS [Concomitant]
     Active Substance: TACROLIMUS
     Indication: Immune disorder prophylaxis
     Dosage: 1 MG, QD
     Route: 065
     Dates: start: 20210425
  4. PREDNISONE [Concomitant]
     Active Substance: PREDNISONE
     Indication: Renal transplant
     Dosage: 5 MG, QD
     Route: 065
     Dates: start: 20210423
  5. PREDNISONE [Concomitant]
     Active Substance: PREDNISONE
     Indication: Immunosuppression
     Dosage: 5 MG, QD
     Route: 048
     Dates: start: 20210425
  6. WELLBUTRIN [Concomitant]
     Active Substance: BUPROPION HYDROCHLORIDE
     Indication: Anxiety
     Dosage: 150 MG, QD
     Route: 065
     Dates: start: 2021
  7. WELLBUTRIN [Concomitant]
     Active Substance: BUPROPION HYDROCHLORIDE
     Dosage: 150 MG, QD
     Route: 065
     Dates: start: 20230629, end: 20230725
  8. FLUOXETINE [Concomitant]
     Active Substance: FLUOXETINE HYDROCHLORIDE
     Indication: Anxiety
     Dosage: 20 MG, QD
     Route: 065
     Dates: start: 2022
  9. CALCITRIOL [Concomitant]
     Active Substance: CALCITRIOL
     Indication: Renal transplant
     Dosage: 0.5 UG, QD ON M, W, F
     Route: 065
     Dates: start: 2019
  10. AMLODIPINE [Concomitant]
     Active Substance: AMLODIPINE BESYLATE
     Indication: Hypertension
     Dosage: 10 MG, QD
     Route: 065
     Dates: start: 20230413
  11. AMLODIPINE [Concomitant]
     Active Substance: AMLODIPINE BESYLATE
     Dosage: 10 UG, QD (IF BP 140/90)
     Route: 065
     Dates: start: 20240405
  12. IMURAN [Concomitant]
     Active Substance: AZATHIOPRINE
     Indication: Renal transplant
     Dosage: 50 MG, 2 DOSAGE FORM, QD
     Route: 065
     Dates: start: 20230815
  13. KEFLEX [Concomitant]
     Active Substance: CEPHALEXIN
     Indication: Urinary tract infection
     Dosage: 500 MG, QD
     Route: 065
     Dates: start: 20231003
  14. LEXAPRO [Concomitant]
     Active Substance: ESCITALOPRAM OXALATE
     Indication: Anxiety
     Dosage: 10 MG, QD
     Route: 065
     Dates: start: 20230606, end: 20230725
  15. LEXAPRO [Concomitant]
     Active Substance: ESCITALOPRAM OXALATE
     Indication: Depression
  16. ROCALTROL [Concomitant]
     Active Substance: CALCITRIOL
     Indication: Renal transplant
     Dosage: 0.5 UG (EVERY MONDAY, WEDNESDAY AND FRIDAY)
     Route: 065
     Dates: start: 20230425
  17. ROCALTROL [Concomitant]
     Active Substance: CALCITRIOL
     Indication: Mineral supplementation
     Dosage: 0.5 UG, Q3W
     Route: 065
     Dates: start: 2021
  18. PROZAC [Concomitant]
     Active Substance: FLUOXETINE HYDROCHLORIDE
     Indication: Anxiety
     Dosage: 20 MG, QD
     Route: 065
     Dates: start: 20230725
  19. ATARAX [Concomitant]
     Active Substance: HYDROXYZINE HYDROCHLORIDE
     Indication: Anxiety
     Dosage: 25 MG, QD (PRN)
     Route: 065
     Dates: start: 20230725
  20. MAGNESIUM [Concomitant]
     Active Substance: MAGNESIUM
     Indication: Hypomagnesaemia
     Dosage: 2.5 DOSAGE FORM, QD
     Route: 065
     Dates: start: 202404
  21. PROGRAF [Concomitant]
     Active Substance: TACROLIMUS
     Indication: Immunosuppression
     Dosage: 1 MG
     Route: 065
     Dates: start: 20210425
  22. AZATHIOPRINE [Concomitant]
     Active Substance: AZATHIOPRINE
     Indication: Immunosuppression
     Dosage: 100 MG, QHS
     Route: 065
     Dates: start: 20230816
  23. AMITRIPTYLINE [Concomitant]
     Active Substance: AMITRIPTYLINE
     Indication: Anxiety
     Dosage: UNK UNK, QHS
     Route: 065
     Dates: start: 20240307
  24. ALPRAZOLAM [Concomitant]
     Active Substance: ALPRAZOLAM
     Indication: Anxiety
     Dosage: UNK UNK, BID (0.25 BID)
     Route: 048
     Dates: start: 20240314

REACTIONS (4)
  - Maternal exposure during pregnancy [Unknown]
  - Delivery [Unknown]
  - Injury [Unknown]
  - Clavicle fracture [Unknown]

NARRATIVE: CASE EVENT DATE: 20240402
